FAERS Safety Report 21221630 (Version 1)
Quarter: 2022Q3

REPORT INFORMATION
  Report Type: Other
  Country: US (occurrence: US)
  Receive Date: 20220817
  Receipt Date: 20220817
  Transmission Date: 20221027
  Serious: Yes (Other)
  Sender: FDA-Public Use
  Company Number: US-INTERCEPT-PM2022001150

PATIENT
  Sex: Female

DRUGS (4)
  1. OCALIVA [Suspect]
     Active Substance: OBETICHOLIC ACID
     Indication: Primary biliary cholangitis
     Dosage: 5 MILLIGRAM, QD
     Route: 048
     Dates: start: 20220503, end: 2022
  2. OCALIVA [Suspect]
     Active Substance: OBETICHOLIC ACID
     Dosage: 5 MILLIGRAM, QD
     Route: 048
     Dates: start: 2022, end: 2022
  3. OCALIVA [Suspect]
     Active Substance: OBETICHOLIC ACID
     Dosage: 10 MILLIGRAM, QD
     Route: 048
     Dates: start: 2022
  4. URSODIOL [Concomitant]
     Active Substance: URSODIOL

REACTIONS (28)
  - Blindness [Not Recovered/Not Resolved]
  - Tunnel vision [Not Recovered/Not Resolved]
  - Depression [Not Recovered/Not Resolved]
  - Chromaturia [Not Recovered/Not Resolved]
  - Yellow skin [Unknown]
  - Musculoskeletal chest pain [Not Recovered/Not Resolved]
  - Diarrhoea [Unknown]
  - Illness [Unknown]
  - Gastrooesophageal reflux disease [Unknown]
  - Eye pain [Not Recovered/Not Resolved]
  - Migraine [Unknown]
  - Oral pain [Not Recovered/Not Resolved]
  - Headache [Unknown]
  - Vomiting [Unknown]
  - Vision blurred [Unknown]
  - Procedural pain [Unknown]
  - Blood alkaline phosphatase increased [Not Recovered/Not Resolved]
  - Urticaria [Not Recovered/Not Resolved]
  - Aspartate aminotransferase increased [Not Recovered/Not Resolved]
  - Alanine aminotransferase increased [Not Recovered/Not Resolved]
  - Ocular icterus [Unknown]
  - Pruritus [Unknown]
  - Abdominal pain upper [Not Recovered/Not Resolved]
  - Rash [Not Recovered/Not Resolved]
  - Dizziness [Not Recovered/Not Resolved]
  - Constipation [Not Recovered/Not Resolved]
  - Oropharyngeal pain [Not Recovered/Not Resolved]
  - Arthralgia [Not Recovered/Not Resolved]

NARRATIVE: CASE EVENT DATE: 20220101
